FAERS Safety Report 17537685 (Version 1)
Quarter: 2020Q1

REPORT INFORMATION
  Report Type: Spontaneous
  Country: GB (occurrence: GB)
  Receive Date: 20200313
  Receipt Date: 20200313
  Transmission Date: 20200409
  Serious: Yes (Other)
  Sender: FDA-Public Use
  Company Number: NVSC2020GB068796

PATIENT
  Age: 75 Year
  Sex: Male

DRUGS (1)
  1. DOCETAXEL. [Suspect]
     Active Substance: DOCETAXEL
     Indication: PROSTATE CANCER
     Dosage: 60 MG/M2, UNK
     Route: 042
     Dates: start: 20170505, end: 20170915

REACTIONS (6)
  - Dry eye [Unknown]
  - Pain [Unknown]
  - Pulmonary embolism [Unknown]
  - Fatigue [Unknown]
  - Paraesthesia [Unknown]
  - Energy increased [Unknown]

NARRATIVE: CASE EVENT DATE: 20170913
